FAERS Safety Report 5350476-0 (Version None)
Quarter: 2007Q2

REPORT INFORMATION
  Report Type: 
  Country: None (occurrence: None)
  Receive Date: 20070608
  Receipt Date: 20070530
  Transmission Date: 20071010
  Serious: Yes (Hospitalization, Other)
  Sender: FDA-Public Use
  Company Number: PHHO2007CO06944

PATIENT
  Age: 38 Year
  Sex: Male

DRUGS (3)
  1. OMEPRAZOLE [Concomitant]
     Dosage: 20 MG, QD
     Dates: start: 20060901
  2. ZELMAC / HTF 919A [Suspect]
     Indication: IRRITABLE BOWEL SYNDROME
     Dosage: 6 MG, BID
     Route: 048
     Dates: start: 20060601
  3. TRIMEBUTINE [Concomitant]
     Dosage: 200 MG, QD
     Dates: start: 20060901

REACTIONS (3)
  - FEMUR FRACTURE [None]
  - OSTEOSYNTHESIS [None]
  - ROAD TRAFFIC ACCIDENT [None]
